FAERS Safety Report 7038696-0 (Version None)
Quarter: 2010Q4

REPORT INFORMATION
  Report Type: 
  Country: None (occurrence: None)
  Receive Date: 20101012
  Receipt Date: 20100927
  Transmission Date: 20110411
  Serious: Yes (Other)
  Sender: FDA-Public Use
  Company Number: JP-ALLERGAN-1013036US

PATIENT

DRUGS (1)
  1. EPINASTINE HYDROCHLORIDE [Suspect]
     Indication: DRY SKIN
     Dosage: UNK
     Route: 048
     Dates: start: 20100901

REACTIONS (1)
  - PLATELET COUNT DECREASED [None]
